FAERS Safety Report 5785762-3 (Version None)
Quarter: 2008Q2

REPORT INFORMATION
  Report Type: 
  Country: None (occurrence: None)
  Receive Date: 20080605
  Receipt Date: 20080225
  Transmission Date: 20081010
  Serious: No
  Sender: FDA-Public Use
  Company Number: A0711455A

PATIENT
  Age: 43 Year
  Sex: Female

DRUGS (2)
  1. ALLI [Suspect]
     Dates: start: 20080218
  2. SYNTHROID [Concomitant]

REACTIONS (3)
  - BACK PAIN [None]
  - MUSCLE SPASMS [None]
  - PAIN [None]
